FAERS Safety Report 16198478 (Version 1)
Quarter: 2019Q2

REPORT INFORMATION
  Report Type: Spontaneous
  Country: AU (occurrence: AU)
  Receive Date: 20190415
  Receipt Date: 20190415
  Transmission Date: 20190711
  Serious: Yes (Other)
  Sender: FDA-Public Use
  Company Number: AU-AMREGENT-20190612

PATIENT
  Age: 31 Year
  Sex: Female

DRUGS (1)
  1. FERINJECT [Suspect]
     Active Substance: FERRIC CARBOXYMALTOSE
     Dosage: 1 GM
     Route: 041
     Dates: start: 20180618

REACTIONS (4)
  - Chest discomfort [Unknown]
  - Rash [Unknown]
  - Rash pruritic [Unknown]
  - Feeling hot [Unknown]

NARRATIVE: CASE EVENT DATE: 20180618
